FAERS Safety Report 24997837 (Version 2)
Quarter: 2025Q3

REPORT INFORMATION
  Report Type: Spontaneous
  Country: US (occurrence: US)
  Receive Date: 20250222
  Receipt Date: 20250915
  Transmission Date: 20251021
  Serious: No
  Sender: SANOFI AVENTIS
  Company Number: US-SA-2025SA041328

PATIENT
  Sex: Male
  Weight: 100 kg

DRUGS (1)
  1. DUPIXENT [Suspect]
     Active Substance: DUPILUMAB
     Indication: Neurodermatitis
     Dosage: 300 MG, QOW
     Route: 058

REACTIONS (4)
  - Neurodermatitis [Not Recovered/Not Resolved]
  - Rebound effect [Not Recovered/Not Resolved]
  - Acne [Not Recovered/Not Resolved]
  - Product dose omission issue [Unknown]
